FAERS Safety Report 6170430-9 (Version None)
Quarter: 2009Q2

REPORT INFORMATION
  Report Type: 
  Country: None (occurrence: None)
  Receive Date: 20090428
  Receipt Date: 20090421
  Transmission Date: 20091009
  Serious: Yes (Other)
  Sender: FDA-Public Use
  Company Number: CA-BAXTER-2009BH006891

PATIENT
  Sex: Female

DRUGS (2)
  1. BREVIBLOC [Suspect]
     Indication: ATRIAL FIBRILLATION
     Route: 040
  2. BREVIBLOC [Suspect]
     Route: 041

REACTIONS (1)
  - DRUG INEFFECTIVE [None]
